FAERS Safety Report 18101727 (Version 2)
Quarter: 2020Q3

REPORT INFORMATION
  Report Type: Spontaneous
  Country: US (occurrence: US)
  Receive Date: 20200802
  Receipt Date: 20200831
  Transmission Date: 20201103
  Serious: No
  Sender: FDA-Public Use
  Company Number: US-ASTRAZENECA-2020SE92174

PATIENT
  Sex: Female
  Weight: 68.9 kg

DRUGS (7)
  1. FASENRA [Suspect]
     Active Substance: BENRALIZUMAB
     Indication: ASTHMA
     Route: 058
  2. FASENRA [Suspect]
     Active Substance: BENRALIZUMAB
     Indication: DRUG ABUSE
     Route: 058
  3. PREDINSONE [Concomitant]
     Active Substance: PREDNISONE
  4. FASENRA [Suspect]
     Active Substance: BENRALIZUMAB
     Indication: DYSPNOEA
     Route: 058
  5. FASENRA [Suspect]
     Active Substance: BENRALIZUMAB
     Indication: DRUG ABUSE
     Route: 058
  6. FASENRA [Suspect]
     Active Substance: BENRALIZUMAB
     Indication: ASTHMA
     Route: 058
  7. FASENRA [Suspect]
     Active Substance: BENRALIZUMAB
     Indication: DYSPNOEA
     Route: 058

REACTIONS (6)
  - Urticaria [Not Recovered/Not Resolved]
  - Facial pain [Unknown]
  - Herpes zoster [Unknown]
  - Body height decreased [Unknown]
  - Rash [Not Recovered/Not Resolved]
  - Burning sensation [Unknown]
